FAERS Safety Report 8007751 (Version 7)
Quarter: 2012Q4

REPORT INFORMATION
  Report Type: Report from Study
  Country: GB (occurrence: GB)
  Receive Date: 20110624
  Receipt Date: 20121211
  Transmission Date: 20130627
  Serious: Yes (Death, Hospitalization)
  Sender: FDA-Public Use
  Company Number: GB-CELGENEUS-167-AB007-11050848

PATIENT
  Age: 79 Year
  Sex: Male
  Weight: 88.5 kg

DRUGS (2)
  1. ABI-007 [Suspect]
     Indication: METASTATIC MALIGNANT MELANOMA
     Dosage: 325 Milligram
     Route: 041
     Dates: start: 20110331, end: 20110427
  2. ABI-007 [Suspect]
     Dosage: 325 Milligram
     Route: 041
     Dates: start: 20110608, end: 20110615

REACTIONS (5)
  - Pneumonia [Fatal]
  - Sepsis [Not Recovered/Not Resolved]
  - Cellulitis [Not Recovered/Not Resolved]
  - Extravasation [Not Recovered/Not Resolved]
  - Fall [Recovered/Resolved]
